FAERS Safety Report 8839984 (Version 1)
Quarter: 2012Q4

REPORT INFORMATION
  Report Type: 
  Country: MY (occurrence: MY)
  Receive Date: 20121015
  Receipt Date: 20121015
  Transmission Date: 20130627
  Serious: Yes (Death, Other)
  Sender: FDA-Public Use
  Company Number: MY-NAPPMUNDI-GBR-2012-0011582

PATIENT
  Age: 76 Year
  Sex: Male

DRUGS (2)
  1. OXYCODONE HCL PR TABLET 20 MG [Suspect]
     Indication: POSTOPERATIVE ANALGESIA
     Dosage: 50 mg, bid
     Route: 048
  2. OXYCODONE HCL PR TABLET 20 MG [Suspect]
     Dosage: 30 mg, bid
     Route: 048

REACTIONS (4)
  - Pneumonia aspiration [Fatal]
  - Sepsis [Fatal]
  - Incorrect dose administered [Unknown]
  - Somnolence [Unknown]
